FAERS Safety Report 5033016-5 (Version None)
Quarter: 2006Q2

REPORT INFORMATION
  Report Type: 
  Country: None (occurrence: None)
  Receive Date: 20060620
  Receipt Date: 20060612
  Transmission Date: 20061013
  Serious: No
  Sender: FDA-Public Use
  Company Number: M-06-0222

PATIENT
  Age: 74 Year
  Sex: Male

DRUGS (18)
  1. PACERONE [Suspect]
     Indication: VENTRICULAR FIBRILLATION
     Dosage: 100 MG, BID, PO
     Route: 048
     Dates: start: 20060204
  2. PACERONE [Suspect]
     Indication: VENTRICULAR FIBRILLATION
     Dosage: 200 MG, BID, PO
     Route: 048
     Dates: start: 20041201, end: 20060203
  3. PACERONE [Suspect]
     Indication: VENTRICULAR FIBRILLATION
     Dosage: 200 MG, QD, PO
     Route: 048
     Dates: start: 20041001, end: 20041201
  4. PACERONE [Suspect]
     Indication: VENTRICULAR FIBRILLATION
     Dosage: 400 MG, QD, PO
     Route: 048
     Dates: start: 19980101, end: 20041001
  5. COUMADIN [Concomitant]
  6. PLAVIX [Concomitant]
  7. ASPIRIN [Concomitant]
  8. SYNTHROID [Concomitant]
  9. FUROSEMIDE [Concomitant]
  10. AVAPRO [Concomitant]
  11. COLACE [Concomitant]
  12. NITROGLYCERINE TRANSDERMAL PATCH [Concomitant]
  13. ASCORBIC ACID [Concomitant]
  14. CARBIDOPA AND LEVODOPA [Concomitant]
  15. LIPITOR [Concomitant]
  16. TOPROL-XL [Concomitant]
  17. ZANTAC [Concomitant]
  18. SPIRONOLACTONE [Concomitant]

REACTIONS (5)
  - CARDIAC ARREST [None]
  - DEVICE FAILURE [None]
  - INCORRECT DOSE ADMINISTERED [None]
  - NAUSEA [None]
  - PHOTOSENSITIVITY REACTION [None]
